FAERS Safety Report 5399540-0 (Version None)
Quarter: 2007Q3

REPORT INFORMATION
  Report Type: 
  Country: None (occurrence: None)
  Receive Date: 20070727
  Receipt Date: 20070712
  Transmission Date: 20080115
  Serious: Yes (Hospitalization, Disabling, Other)
  Sender: FDA-Public Use
  Company Number: US-PFIZER INC-2006152021

PATIENT
  Sex: Female
  Weight: 78 kg

DRUGS (3)
  1. BEXTRA [Suspect]
     Indication: PAIN IN EXTREMITY
  2. VIOXX [Suspect]
     Indication: PAIN
     Route: 048
     Dates: start: 20010911, end: 20040401
  3. SYNTHROID [Concomitant]

REACTIONS (1)
  - CEREBROVASCULAR ACCIDENT [None]
